FAERS Safety Report 9712404 (Version 1)
Quarter: 2013Q4

REPORT INFORMATION
  Report Type: Spontaneous
  Country: US (occurrence: US)
  Receive Date: 20131126
  Receipt Date: 20131126
  Transmission Date: 20140711
  Serious: No
  Sender: FDA-Public Use
  Company Number: US-BRISTOL-MYERS SQUIBB COMPANY-18871673

PATIENT
  Sex: Male

DRUGS (1)
  1. BYDUREON 2MG SUSPENSION [Suspect]
     Dosage: NO OF INJ:3

REACTIONS (5)
  - Early satiety [Unknown]
  - Fatigue [Unknown]
  - Dyspepsia [Unknown]
  - Feeling cold [Unknown]
  - Night sweats [Unknown]
